FAERS Safety Report 4622409-3 (Version None)
Quarter: 2005Q1

REPORT INFORMATION
  Report Type: 
  Country: None (occurrence: None)
  Receive Date: 20050317
  Receipt Date: 20040216
  Transmission Date: 20050727
  Serious: Yes (Hospitalization)
  Sender: FDA-Public Use
  Company Number: PHEH2004US01808

PATIENT
  Age: 70 Year
  Sex: Female

DRUGS (11)
  1. TRILEPTAL [Suspect]
     Indication: BIPOLAR DISORDER
     Dosage: 300 MG BID ORAL
     Route: 048
     Dates: start: 20021001, end: 20040101
  2. FUROSEMIDE [Concomitant]
  3. LANOXIN [Concomitant]
  4. KCL (POTASSIUM CHLORIDE) [Concomitant]
  5. DEPAKOTE [Concomitant]
  6. IMDUR [Concomitant]
  7. LOPRESSOR [Concomitant]
  8. PRINIVIL [Concomitant]
  9. SYNTHROID [Concomitant]
  10. GEODON [Concomitant]
  11. IRON [Concomitant]

REACTIONS (1)
  - HYPONATRAEMIA [None]
